FAERS Safety Report 10080685 (Version 1)
Quarter: 2014Q2

REPORT INFORMATION
  Report Type: Spontaneous
  Country: FR (occurrence: FR)
  Receive Date: 20140416
  Receipt Date: 20140416
  Transmission Date: 20141212
  Serious: Yes (Hospitalization)
  Sender: FDA-Public Use
  Company Number: FR-ROCHE-1378402

PATIENT
  Age: 89 Year
  Sex: Female

DRUGS (10)
  1. ROCEPHINE [Suspect]
     Indication: BRONCHOPNEUMOPATHY
     Route: 065
     Dates: start: 20140115, end: 20140123
  2. PREVISCAN (FRANCE) [Interacting]
     Indication: PRODUCT USED FOR UNKNOWN INDICATION
     Route: 048
  3. CORTANCYL [Concomitant]
     Route: 048
  4. CORDARONE [Concomitant]
     Route: 048
  5. ORELOX [Concomitant]
     Indication: BRONCHOPNEUMOPATHY
  6. LASILIX [Concomitant]
  7. BRICANYL [Concomitant]
     Route: 065
  8. ATROVENT [Concomitant]
  9. PULMICORT [Concomitant]
     Route: 065
  10. VITAMIN K [Concomitant]
     Route: 065

REACTIONS (3)
  - Peritoneal haemorrhage [Recovered/Resolved]
  - Shock haemorrhagic [Recovered/Resolved]
  - Drug interaction [Unknown]
